FAERS Safety Report 5486074-8 (Version None)
Quarter: 2007Q4

REPORT INFORMATION
  Report Type: 
  Country: None (occurrence: None)
  Receive Date: 20071012
  Receipt Date: 20070907
  Transmission Date: 20080405
  Serious: Yes (Other)
  Sender: FDA-Public Use
  Company Number: STI-2007-01520

PATIENT
  Sex: Male

DRUGS (2)
  1. BETAMETHASONE VALERATE [Suspect]
     Indication: PRURITUS
     Dosage: INGUINAL, ANAL, FACE;
  2. BETAMETHASONE VALERATE [Suspect]
     Indication: SEBORRHOEIC DERMATITIS
     Dosage: INGUINAL, ANAL, FACE;

REACTIONS (3)
  - DRUG DEPENDENCE [None]
  - DRUG WITHDRAWAL SYNDROME [None]
  - GENITAL RASH [None]
